FAERS Safety Report 16990408 (Version 2)
Quarter: 2020Q4

REPORT INFORMATION
  Report Type: Spontaneous
  Country: IT (occurrence: IT)
  Receive Date: 20191104
  Receipt Date: 20201210
  Transmission Date: 20210113
  Serious: Yes (Other)
  Sender: FDA-Public Use
  Company Number: IT-JAZZ-2019-IT-015071

PATIENT
  Age: 37 Year
  Sex: Male
  Weight: 71 kg

DRUGS (3)
  1. BETAMETHASONE DIPROPIONATE. [Suspect]
     Active Substance: BETAMETHASONE DIPROPIONATE
     Indication: PSORIASIS
     Dosage: 1 DOSAGE FORM, AS NEEDED
     Route: 061
     Dates: start: 20190315, end: 20190915
  2. XYREM [Suspect]
     Active Substance: SODIUM OXYBATE
     Indication: SUBSTANCE USE
     Dosage: 1 DOSAGE FORM, AS NEEDED (PRN)
     Route: 048
     Dates: start: 20180615, end: 20190915
  3. GENVOYA [Suspect]
     Active Substance: COBICISTAT\ELVITEGRAVIR\EMTRICITABINE\TENOFOVIR ALAFENAMIDE FUMARATE
     Indication: HIV TEST POSITIVE
     Dosage: 1 DOSAGE FORM, DAILY
     Route: 048
     Dates: start: 20171015, end: 20190915

REACTIONS (3)
  - Drug abuse [Unknown]
  - Cushing^s syndrome [Not Recovered/Not Resolved]
  - Drug interaction [Unknown]

NARRATIVE: CASE EVENT DATE: 20180615
